FAERS Safety Report 7671973-9 (Version None)
Quarter: 2011Q3

REPORT INFORMATION
  Report Type: 
  Country: None (occurrence: None)
  Receive Date: 20110809
  Receipt Date: 20110727
  Transmission Date: 20111222
  Serious: Yes (Hospitalization)
  Sender: FDA-Public Use
  Company Number: DE-GLAXOSMITHKLINE-B0737574A

PATIENT
  Sex: Male

DRUGS (8)
  1. INSULIN [Concomitant]
  2. ALLOPURINOL [Concomitant]
  3. DIGITOXIN TAB [Concomitant]
  4. RITUXIMAB [Suspect]
     Indication: CHRONIC LYMPHOCYTIC LEUKAEMIA
     Dosage: 1061MG MONTHLY
     Route: 042
     Dates: start: 20100721
  5. ENOXAPARIN SODIUM [Concomitant]
  6. BISOPROLOL FUMARATE [Concomitant]
  7. MARCUMAR [Concomitant]
  8. CHLORAMBUCIL [Suspect]
     Indication: CHRONIC LYMPHOCYTIC LEUKAEMIA
     Dosage: 42.5MG EVERY TWO WEEKS
     Route: 048
     Dates: start: 20100721

REACTIONS (3)
  - DISORIENTATION [None]
  - INFECTION [None]
  - PYREXIA [None]
